FAERS Safety Report 13018904 (Version 1)
Quarter: 2016Q4

REPORT INFORMATION
  Report Type: Spontaneous
  Country: US (occurrence: US)
  Receive Date: 20161212
  Receipt Date: 20161212
  Transmission Date: 20170207
  Serious: Yes (Other)
  Sender: FDA-Public Use
  Company Number: US-PFIZER INC-2016569183

PATIENT
  Sex: Female

DRUGS (1)
  1. XELJANZ XR [Suspect]
     Active Substance: TOFACITINIB CITRATE
     Dosage: 11 MG, UNK

REACTIONS (18)
  - Cellulitis [Unknown]
  - Pyrexia [Unknown]
  - Erythema [Unknown]
  - Complication associated with device [Unknown]
  - Blood pressure increased [Unknown]
  - Chills [Unknown]
  - Joint swelling [Unknown]
  - Cough [Unknown]
  - Dyspepsia [Unknown]
  - Myalgia [Unknown]
  - Rash [Unknown]
  - Headache [Unknown]
  - Dyspnoea [Unknown]
  - Back pain [Unknown]
  - Arthralgia [Unknown]
  - Rhinorrhoea [Unknown]
  - Weight decreased [Unknown]
  - Malaise [Unknown]
